FAERS Safety Report 12542189 (Version 3)
Quarter: 2016Q3

REPORT INFORMATION
  Report Type: Spontaneous
  Country: US (occurrence: US)
  Receive Date: 20160708
  Receipt Date: 20160816
  Transmission Date: 20161109
  Serious: Yes (Life-Threatening, Hospitalization, Disabling, Other)
  Sender: FDA-Public Use
  Company Number: US-SAOL THERAPEUTICS-2016SAO00105

PATIENT
  Age: 74 Year
  Sex: Female

DRUGS (7)
  1. BUPIVACAINE. [Suspect]
     Active Substance: BUPIVACAINE
     Indication: BACK PAIN
  2. MORPHINE [Suspect]
     Active Substance: MORPHINE
     Dosage: UNK
     Route: 037
  3. BACLOFEN. [Suspect]
     Active Substance: BACLOFEN
     Indication: PAIN
     Dosage: 61.95 ?G, \DAY
     Route: 037
     Dates: start: 2015
  4. BACLOFEN. [Suspect]
     Active Substance: BACLOFEN
     Indication: BACK PAIN
  5. MORPHINE [Suspect]
     Active Substance: MORPHINE
     Indication: BACK PAIN
  6. BUPIVACAINE. [Suspect]
     Active Substance: BUPIVACAINE
     Indication: PAIN
     Dosage: 5.632 MG, \DAY
     Route: 037
  7. MORPHINE [Suspect]
     Active Substance: MORPHINE
     Indication: PAIN
     Dosage: 18.772 MG, \DAY
     Route: 037

REACTIONS (14)
  - Mobility decreased [Unknown]
  - Refusal of treatment by patient [Not Recovered/Not Resolved]
  - Hospitalisation [Unknown]
  - Muscle spasms [Unknown]
  - Asthenia [Unknown]
  - Mania [Unknown]
  - Abnormal behaviour [Not Recovered/Not Resolved]
  - Drug ineffective for unapproved indication [Not Recovered/Not Resolved]
  - Incorrect route of drug administration [Unknown]
  - Endotracheal intubation [Unknown]
  - Amnesia [Unknown]
  - Pain [Unknown]
  - Suicidal ideation [Not Recovered/Not Resolved]
  - Diet refusal [Not Recovered/Not Resolved]

NARRATIVE: CASE EVENT DATE: 2016
